FAERS Safety Report 26117239 (Version 1)
Quarter: 2025Q4

REPORT INFORMATION
  Report Type: Other
  Country: GB (occurrence: GB)
  Receive Date: 20251203
  Receipt Date: 20251203
  Transmission Date: 20260117
  Serious: Yes (Other)
  Sender: ANI
  Company Number: GB-ANIPHARMA-031263

PATIENT
  Age: 52 Year
  Sex: Female

DRUGS (1)
  1. IBUPROFEN [Suspect]
     Active Substance: IBUPROFEN
     Indication: Spinal osteoarthritis

REACTIONS (1)
  - Acute febrile neutrophilic dermatosis [Recovering/Resolving]
